FAERS Safety Report 18308294 (Version 1)
Quarter: 2020Q3

REPORT INFORMATION
  Report Type: Spontaneous
  Country: NL (occurrence: NL)
  Receive Date: 20200924
  Receipt Date: 20200924
  Transmission Date: 20201103
  Serious: Yes (Other)
  Sender: FDA-Public Use
  Company Number: NL-TEVA-2019-NL-1144662

PATIENT
  Age: 52 Year
  Sex: Female

DRUGS (6)
  1. FLUCLOXACILLINE CAPSULE 250MG / BRAND NAME NOT SPECIFIED [Suspect]
     Active Substance: FLUCLOXACILLIN
     Indication: PYELITIS
     Route: 065
     Dates: start: 201905
  2. KALIUMCITRAAT 500MG [Concomitant]
  3. COTRIMOXAZOLE [Suspect]
     Active Substance: SULFAMETHOXAZOLE\TRIMETHOPRIM
     Indication: PYELITIS
     Dosage: TABLETS
     Route: 065
     Dates: start: 201905, end: 201905
  4. CIMICIFUGA [Suspect]
     Active Substance: BLACK COHOSH
     Indication: MENOPAUSE
     Dosage: 2 DOSAGE FORMS DAILY;
     Route: 065
     Dates: start: 2019, end: 201910
  5. MULTIVITAMINEN [Concomitant]
  6. CEFTRIAXON INFVLST 10MG/ML / BRAND NAME NOT SPECIFIED [Suspect]
     Active Substance: CEFTRIAXONE
     Indication: PYELITIS
     Dosage: INFUSION FOR 5 DAYS
     Route: 065
     Dates: start: 201904

REACTIONS (6)
  - Memory impairment [Not Recovered/Not Resolved]
  - Fatigue [Not Recovered/Not Resolved]
  - Paraesthesia [Not Recovered/Not Resolved]
  - Loss of consciousness [Not Recovered/Not Resolved]
  - Ocular discomfort [Not Recovered/Not Resolved]
  - Peroneal nerve palsy [Not Recovered/Not Resolved]

NARRATIVE: CASE EVENT DATE: 201909
